FAERS Safety Report 7472102-7 (Version None)
Quarter: 2011Q2

REPORT INFORMATION
  Report Type: 
  Country: None (occurrence: None)
  Receive Date: 20110511
  Receipt Date: 20101222
  Transmission Date: 20111010
  Serious: No
  Sender: FDA-Public Use
  Company Number: A0901412A

PATIENT
  Age: 59 Year
  Sex: Female

DRUGS (3)
  1. OTHER MEDICATIONS [Concomitant]
  2. TYKERB [Suspect]
     Indication: BREAST CANCER
     Dosage: 1000MG PER DAY
     Route: 048
     Dates: start: 20101214
  3. SYNTHROID [Concomitant]

REACTIONS (1)
  - DIARRHOEA [None]
